FAERS Safety Report 4576710-2 (Version None)
Quarter: 2005Q1

REPORT INFORMATION
  Report Type: 
  Country: None (occurrence: None)
  Receive Date: 20050207
  Receipt Date: 20050122
  Transmission Date: 20050727
  Serious: Yes (Hospitalization, Other)
  Sender: FDA-Public Use
  Company Number: 200500657

PATIENT
  Age: 30 Year
  Sex: Female

DRUGS (2)
  1. BOTOX [Suspect]
     Indication: SKIN WRINKLING
     Dates: start: 20030801
  2. YASMIN [Concomitant]

REACTIONS (5)
  - CAESAREAN SECTION [None]
  - DRUG EXPOSURE DURING PREGNANCY [None]
  - PREGNANCY ON ORAL CONTRACEPTIVE [None]
  - PREMATURE BABY [None]
  - PREMATURE LABOUR [None]
